FAERS Safety Report 22239632 (Version 1)
Quarter: 2023Q2

REPORT INFORMATION
  Report Type: Spontaneous
  Country: US (occurrence: None)
  Receive Date: 20230420
  Receipt Date: 20230420
  Transmission Date: 20230722
  Serious: Yes (Disabling, Other)
  Sender: FDA-Public Use
  Company Number: None

PATIENT
  Age: 17 Year
  Sex: Male
  Weight: 58.5 kg

DRUGS (1)
  1. HUMIRA [Suspect]
     Active Substance: ADALIMUMAB
     Indication: Proctitis ulcerative
     Dosage: OTHER FREQUENCY : EVERY OTHER WEEK;?
     Route: 058
     Dates: start: 20221215

REACTIONS (7)
  - Fatigue [None]
  - Headache [None]
  - Pain in extremity [None]
  - Mobility decreased [None]
  - Alanine aminotransferase increased [None]
  - Pain in extremity [None]
  - Aspartate aminotransferase increased [None]

NARRATIVE: CASE EVENT DATE: 20221215
